FAERS Safety Report 7989663-1 (Version None)
Quarter: 2011Q4

REPORT INFORMATION
  Report Type: 
  Country: None (occurrence: None)
  Receive Date: 20111219
  Receipt Date: 20111215
  Transmission Date: 20120403
  Serious: Yes (Hospitalization)
  Sender: FDA-Public Use
  Company Number: IT-BAYER-2011-120942

PATIENT
  Age: 64 Year
  Sex: Male

DRUGS (4)
  1. ASPIRIN [Suspect]
     Dosage: 500 MG, PRN
     Route: 048
     Dates: start: 20111022, end: 20111106
  2. ASACOL [Concomitant]
     Dosage: UNK
  3. TAMSULOSIN HYDROCHLORIDE [Concomitant]
     Dosage: UNK
  4. NIMESULIDE [Suspect]
     Dosage: DAILY DOSE 100 MG
     Route: 048
     Dates: start: 20111022, end: 20111106

REACTIONS (1)
  - PROCTITIS HAEMORRHAGIC [None]
